FAERS Safety Report 7489251-X (Version None)
Quarter: 2011Q2

REPORT INFORMATION
  Report Type: 
  Country: None (occurrence: None)
  Receive Date: 20110518
  Receipt Date: 20110511
  Transmission Date: 20111010
  Serious: Yes (Death, Hospitalization)
  Sender: FDA-Public Use
  Company Number: US-CELGENEUS-163-21880-11051489

PATIENT
  Sex: Female
  Weight: 83.99 kg

DRUGS (7)
  1. FE [Concomitant]
     Route: 048
     Dates: start: 20110101
  2. OMEPRAZOLE [Concomitant]
     Dosage: 40 MILLIGRAM
     Route: 048
     Dates: start: 20110201
  3. LASIX [Concomitant]
     Dosage: 40 MILLIGRAM
     Route: 048
     Dates: start: 20110401
  4. POTASSIUM [Concomitant]
     Dosage: 10 MILLIEQUIVALENTS
     Route: 048
     Dates: start: 20110412
  5. REVLIMID [Suspect]
     Indication: MULTIPLE MYELOMA
     Dosage: 15 MILLIGRAM
     Route: 048
     Dates: start: 20110415
  6. OXYCODONE HCL [Concomitant]
     Dosage: 5/325
     Route: 048
     Dates: start: 20110201
  7. GARLIC [Concomitant]
     Route: 048
     Dates: start: 20110101

REACTIONS (1)
  - CARDIAC DISORDER [None]
